FAERS Safety Report 21794718 (Version 2)
Quarter: 2023Q1

REPORT INFORMATION
  Report Type: Spontaneous
  Country: JP (occurrence: None)
  Receive Date: 20221229
  Receipt Date: 20230105
  Transmission Date: 20230418
  Serious: Yes (Other)
  Sender: FDA-Public Use
  Company Number: 2022A385217

PATIENT
  Age: 76 Year
  Sex: Male

DRUGS (3)
  1. LOKELMA [Suspect]
     Active Substance: SODIUM ZIRCONIUM CYCLOSILICATE
     Indication: Hyperkalaemia
     Route: 048
     Dates: start: 20220208
  2. LOKELMA [Suspect]
     Active Substance: SODIUM ZIRCONIUM CYCLOSILICATE
     Indication: Hyperkalaemia
     Route: 048
     Dates: start: 20210723, end: 20211019
  3. LOKELMA [Suspect]
     Active Substance: SODIUM ZIRCONIUM CYCLOSILICATE
     Indication: Hyperkalaemia
     Route: 048
     Dates: start: 20210720

REACTIONS (6)
  - Prerenal failure [Unknown]
  - Constipation [Recovered/Resolved]
  - Diarrhoea [Recovered/Resolved]
  - Nephrogenic anaemia [Unknown]
  - Drug ineffective [Unknown]
  - Product dose omission issue [Unknown]

NARRATIVE: CASE EVENT DATE: 20210101
